FAERS Safety Report 5032307-1 (Version None)
Quarter: 2006Q2

REPORT INFORMATION
  Report Type: 
  Country: None (occurrence: None)
  Receive Date: 20060508
  Receipt Date: 20051004
  Transmission Date: 20061013
  Serious: Yes (Hospitalization, Other)
  Sender: FDA-Public Use
  Company Number: USA0510109956

PATIENT
  Age: 73 Year
  Sex: Female

DRUGS (2)
  1. PROZAC [Suspect]
     Indication: ANXIETY
     Dosage: 40 MG DAILY (1/D), UNK
     Route: 065
  2. DIURETIC [Concomitant]

REACTIONS (2)
  - CYSTITIS [None]
  - WEIGHT DECREASED [None]
